FAERS Safety Report 14933802 (Version 1)
Quarter: 2018Q2

REPORT INFORMATION
  Report Type: Spontaneous
  Country: US (occurrence: US)
  Receive Date: 20180524
  Receipt Date: 20180524
  Transmission Date: 20180711
  Serious: No
  Sender: FDA-Public Use
  Company Number: US-TARO-2017TAR00821

PATIENT
  Age: 2 Year
  Sex: Male

DRUGS (1)
  1. FEVERALL INFANTS [Suspect]
     Active Substance: ACETAMINOPHEN
     Indication: PYREXIA
     Dosage: 80 MG, AS DIRECTED EVERY 4-6 HOURS (WHATEVER THE LABEL SAYS)
     Route: 054
     Dates: start: 20170920, end: 20170923

REACTIONS (2)
  - Drug ineffective [Not Recovered/Not Resolved]
  - Product quality issue [Recovered/Resolved]

NARRATIVE: CASE EVENT DATE: 20170920
